FAERS Safety Report 17758005 (Version 1)
Quarter: 2020Q2

REPORT INFORMATION
  Report Type: Spontaneous
  Country: ES (occurrence: ES)
  Receive Date: 20200507
  Receipt Date: 20200507
  Transmission Date: 20200714
  Serious: Yes (Hospitalization)
  Sender: FDA-Public Use
  Company Number: NVSC2020ES123387

PATIENT
  Age: 78 Year
  Sex: Male

DRUGS (6)
  1. LINEZOLID. [Interacting]
     Active Substance: LINEZOLID
     Indication: RESPIRATORY FAILURE
     Dosage: 1.2 G, QD
     Route: 048
     Dates: start: 20191114, end: 20191128
  2. HIDROCLOROTIAZIDA [Interacting]
     Active Substance: HYDROCHLOROTHIAZIDE
     Indication: HYPERTENSION
     Dosage: 50 MG, QD
     Route: 048
     Dates: start: 201603, end: 20191120
  3. FUROSEMIDE. [Suspect]
     Active Substance: FUROSEMIDE
     Indication: HYPERTENSION
     Dosage: 40 MG, QD
     Route: 048
     Dates: start: 20191108, end: 20191115
  4. METILPREDNISOLONA [Concomitant]
     Active Substance: METHYLPREDNISOLONE
     Indication: CHRONIC OBSTRUCTIVE PULMONARY DISEASE
     Dosage: 20 MG, QD
     Route: 042
     Dates: start: 20191108, end: 20191129
  5. ENALAPRIL MALEATO [Concomitant]
     Active Substance: ENALAPRIL MALEATE
     Indication: HYPERTENSION
     Dosage: 20 MG, QD
     Route: 048
     Dates: start: 200711
  6. SULFAMETOXAZOL + TRIMETOPRIMA [Interacting]
     Active Substance: SULFAMETHOXAZOLE\TRIMETHOPRIM
     Indication: RESPIRATORY FAILURE
     Dosage: 160 MG, QD
     Route: 048
     Dates: start: 20191108, end: 20191118

REACTIONS (1)
  - Hyponatraemia [Recovered/Resolved]

NARRATIVE: CASE EVENT DATE: 20191114
